FAERS Safety Report 25993422 (Version 1)
Quarter: 2025Q4

REPORT INFORMATION
  Report Type: Spontaneous
  Country: EU (occurrence: EU)
  Receive Date: 20251104
  Receipt Date: 20251104
  Transmission Date: 20260117
  Serious: Yes (Other)
  Sender: ACCORD
  Company Number: None

PATIENT
  Age: 39 Year
  Sex: Male
  Weight: 155 kg

DRUGS (13)
  1. ONDANSETRON [Suspect]
     Active Substance: ONDANSETRON
     Indication: Vomiting
     Dates: start: 20250813, end: 20250825
  2. CEFEPIME [Suspect]
     Active Substance: CEFEPIME HYDROCHLORIDE
     Indication: Infection prophylaxis
     Dates: start: 20250822, end: 20250825
  3. METOCLOPRAMIDE [Suspect]
     Active Substance: METOCLOPRAMIDE
     Indication: Vomiting
     Dates: start: 20250816, end: 20250825
  4. METRONIDAZOLE [Suspect]
     Active Substance: METRONIDAZOLE
     Indication: Diarrhoea infectious
     Dates: start: 20250822, end: 20250825
  5. BACTRIM [Concomitant]
     Active Substance: SULFAMETHOXAZOLE\TRIMETHOPRIM
     Dates: start: 20250813, end: 20250827
  6. NEFOPAM [Suspect]
     Active Substance: NEFOPAM
     Indication: Analgesic therapy
     Dates: start: 20250821, end: 20250825
  7. MONTMORILLONITE [Concomitant]
     Active Substance: MONTMORILLONITE
     Dates: start: 20250811, end: 20250901
  8. FLUCONAZOLE [Concomitant]
     Active Substance: FLUCONAZOLE
     Dates: start: 20250820, end: 20250827
  9. LEUCOVORIN CALCIUM [Concomitant]
     Active Substance: LEUCOVORIN CALCIUM
     Dosage: STRENGTH: 25 MG
     Dates: start: 20250817
  10. ACETAMINOPHEN [Concomitant]
     Active Substance: ACETAMINOPHEN
     Dates: start: 20250821, end: 20250826
  11. RACECADOTRIL [Concomitant]
     Active Substance: RACECADOTRIL
     Dates: start: 20250817, end: 20250909
  12. VALACYCLOVIR HYDROCHLORIDE [Concomitant]
     Active Substance: VALACYCLOVIR HYDROCHLORIDE
     Dates: start: 20250820, end: 20250827
  13. URSODIOL [Concomitant]
     Active Substance: URSODIOL
     Dates: start: 20250811, end: 20250902

REACTIONS (1)
  - Agitation [Recovered/Resolved]

NARRATIVE: CASE EVENT DATE: 20250825
